FAERS Safety Report 13141084 (Version 2)
Quarter: 2017Q1

REPORT INFORMATION
  Report Type: Spontaneous
  Country: FR (occurrence: FR)
  Receive Date: 20170123
  Receipt Date: 20170124
  Transmission Date: 20170428
  Serious: Yes (Death, Other)
  Sender: FDA-Public Use
  Company Number: FR-JNJFOC-20170118448

PATIENT
  Age: 45 Year
  Sex: Male

DRUGS (1)
  1. XEPLION [Suspect]
     Active Substance: PALIPERIDONE PALMITATE
     Indication: SCHIZOPHRENIA
     Route: 030

REACTIONS (2)
  - Myocardial infarction [Unknown]
  - Cardiac disorder [Fatal]

NARRATIVE: CASE EVENT DATE: 20161218
